FAERS Safety Report 7016310-8 (Version None)
Quarter: 2010Q3

REPORT INFORMATION
  Report Type: 
  Country: None (occurrence: None)
  Receive Date: 20100927
  Receipt Date: 20100915
  Transmission Date: 20110219
  Serious: Yes (Other)
  Sender: FDA-Public Use
  Company Number: FR-PFIZER INC-2010116423

PATIENT
  Weight: 2.39 kg

DRUGS (6)
  1. TRIFLUCAN [Suspect]
     Indication: CANDIDIASIS
     Dosage: 3 DF, WEEKLY, ON THURSAY
     Route: 064
  2. THIOVALONE [Suspect]
     Dosage: 1 DF, 3X/DAY
     Route: 064
  3. TOPLEXIL [Suspect]
     Dosage: 10 ML, 2X/DAY
     Route: 064
  4. OZOTHIN [Suspect]
     Dosage: 1 DF, 1X/DAY
     Route: 064
  5. RHINOFLUIMUCIL [Suspect]
     Dosage: 1 DF, 3X/DAY
     Route: 064
  6. PARACETAMOL [Suspect]
     Dosage: 1 DF, 3X/DAY
     Route: 064

REACTIONS (3)
  - CAESAREAN SECTION [None]
  - DRUG EXPOSURE DURING PREGNANCY [None]
  - FOETAL ARRHYTHMIA [None]
